FAERS Safety Report 7978429-4 (Version None)
Quarter: 2011Q4

REPORT INFORMATION
  Report Type: 
  Country: None (occurrence: None)
  Receive Date: 20111129
  Receipt Date: 20110718
  Transmission Date: 20120403
  Serious: No
  Sender: FDA-Public Use
  Company Number: PHHY2011US59790

PATIENT
  Age: 78 Year
  Sex: Female

DRUGS (10)
  1. AFINITOR [Suspect]
     Indication: TUBEROUS SCLEROSIS
     Dosage: 5 MG, DAILY, ORAL
     Route: 048
     Dates: start: 20110131
  2. AFINITOR [Suspect]
     Indication: ASTROCYTOMA
     Dosage: 5 MG, DAILY, ORAL
     Route: 048
     Dates: start: 20110131
  3. LEXAPRO [Concomitant]
  4. CARBATROL [Concomitant]
  5. PRILOSEC [Concomitant]
  6. KEPPRA [Concomitant]
  7. KLONOPIN [Concomitant]
  8. GABATRIL (TIAGABINE HYDROCHLORIDE) [Concomitant]
  9. SABRIL [Concomitant]
  10. TOPAMAX [Concomitant]

REACTIONS (7)
  - RASH [None]
  - NASOPHARYNGITIS [None]
  - MASS [None]
  - DERMATITIS CONTACT [None]
  - SNEEZING [None]
  - SWELLING FACE [None]
  - ERYTHEMA [None]
